FAERS Safety Report 13040909 (Version 19)
Quarter: 2022Q2

REPORT INFORMATION
  Report Type: Spontaneous
  Country: US (occurrence: US)
  Receive Date: 20161219
  Receipt Date: 20220525
  Transmission Date: 20220721
  Serious: Yes (Other)
  Sender: FDA-Public Use
  Company Number: US-PFIZER INC-2016575765

PATIENT
  Age: 58 Year
  Sex: Female

DRUGS (6)
  1. IBRANCE [Suspect]
     Active Substance: PALBOCICLIB
     Indication: Breast cancer metastatic
     Dosage: 125 MG
     Route: 048
     Dates: start: 20151128, end: 20160708
  2. IBRANCE [Suspect]
     Active Substance: PALBOCICLIB
     Dosage: UNK
     Dates: start: 20151128
  3. IBRANCE [Suspect]
     Active Substance: PALBOCICLIB
     Dosage: 100 MG, UNK
     Route: 048
     Dates: start: 20160708
  4. IBRANCE [Suspect]
     Active Substance: PALBOCICLIB
     Dosage: 100 MG, CYCLIC (DAILY FOR 3 WEEKS THEN HOLD 7 DAYS)
     Route: 048
     Dates: start: 20180112
  5. LETROZOLE [Suspect]
     Active Substance: LETROZOLE
     Indication: Breast cancer metastatic
     Dosage: UNK
     Dates: start: 201508
  6. LETROZOLE [Suspect]
     Active Substance: LETROZOLE
     Dosage: UNK
     Dates: start: 20151128

REACTIONS (32)
  - Cachexia [Unknown]
  - Lower limb fracture [Unknown]
  - Off label use [Unknown]
  - Product dose omission issue [Unknown]
  - Product administration error [Unknown]
  - Arthralgia [Unknown]
  - Asthenia [Unknown]
  - Full blood count abnormal [Unknown]
  - Body height decreased [Unknown]
  - Weight decreased [Unknown]
  - Chest pain [Recovering/Resolving]
  - Cognitive disorder [Unknown]
  - Decreased appetite [Unknown]
  - Dry skin [Unknown]
  - Fatigue [Unknown]
  - Fluid retention [Unknown]
  - Haemoglobin decreased [Unknown]
  - Haematocrit decreased [Unknown]
  - Hot flush [Unknown]
  - Hyperchlorhydria [Unknown]
  - Influenza [Unknown]
  - Malaise [Unknown]
  - Nausea [Not Recovered/Not Resolved]
  - Memory impairment [Unknown]
  - Neoplasm progression [Unknown]
  - Pain [Unknown]
  - Stomatitis [Unknown]
  - Taste disorder [Unknown]
  - Weight increased [Unknown]
  - Vomiting [Unknown]
  - Illness [Unknown]
  - Poor quality sleep [Unknown]

NARRATIVE: CASE EVENT DATE: 20160708
